FAERS Safety Report 13605517 (Version 1)
Quarter: 2017Q2

REPORT INFORMATION
  Report Type: Spontaneous
  Country: US (occurrence: US)
  Receive Date: 20170602
  Receipt Date: 20170602
  Transmission Date: 20170830
  Serious: No
  Sender: FDA-Public Use
  Company Number: US-NOVEN PHARMACEUTICALS, INC.-US2016000619

PATIENT

DRUGS (1)
  1. DAYTRANA [Suspect]
     Active Substance: METHYLPHENIDATE
     Indication: ATTENTION DEFICIT/HYPERACTIVITY DISORDER
     Dosage: USING TWO PATCHES (20MG + 30MG EACH) TOGETHER, UNKNOWN
     Route: 062
     Dates: start: 2011

REACTIONS (4)
  - Off label use [Not Recovered/Not Resolved]
  - No adverse event [Unknown]
  - Wrong technique in product usage process [Unknown]
  - Prescribed overdose [Unknown]

NARRATIVE: CASE EVENT DATE: 2011
